FAERS Safety Report 25006949 (Version 1)
Quarter: 2025Q1

REPORT INFORMATION
  Report Type: Spontaneous
  Country: FR (occurrence: FR)
  Receive Date: 20250225
  Receipt Date: 20250225
  Transmission Date: 20250409
  Serious: Yes (Death, Hospitalization, Other)
  Sender: UCB
  Company Number: FR-UCBSA-2025010407

PATIENT
  Sex: Female

DRUGS (1)
  1. BIMZELX [Suspect]
     Active Substance: BIMEKIZUMAB-BKZX
     Indication: Psoriasis

REACTIONS (5)
  - Shock haemorrhagic [Fatal]
  - Peritoneal haematoma [Fatal]
  - Ascites [Unknown]
  - Hepatitis alcoholic [Unknown]
  - Respiratory tract infection viral [Unknown]
